FAERS Safety Report 7717501-0 (Version None)
Quarter: 2011Q3

REPORT INFORMATION
  Report Type: 
  Country: None (occurrence: None)
  Receive Date: 20110830
  Receipt Date: 20110817
  Transmission Date: 20111222
  Serious: Yes (Other)
  Sender: FDA-Public Use
  Company Number: GB-UCBSA-8014740

PATIENT
  Age: 25 Year
  Sex: Female

DRUGS (2)
  1. LEVETIRACETAM [Suspect]
     Indication: EPILEPSY
     Dosage: DAILY
  2. CARBAMAZEPINE [Suspect]
     Indication: EPILEPSY
     Dosage: DAILY

REACTIONS (2)
  - ABORTION INDUCED [None]
  - PREGNANCY [None]
